FAERS Safety Report 9203991 (Version 1)
Quarter: 2013Q2

REPORT INFORMATION
  Report Type: Spontaneous
  Country: US (occurrence: US)
  Receive Date: 20130402
  Receipt Date: 20130402
  Transmission Date: 20140414
  Serious: Yes (Other)
  Sender: FDA-Public Use
  Company Number: US-MERCK-2011SP042571

PATIENT
  Age: 29 Year
  Sex: Female

DRUGS (3)
  1. SAPHRIS [Suspect]
     Indication: SCHIZOAFFECTIVE DISORDER
     Dosage: 5 MG, BID
     Route: 060
     Dates: start: 20110111, end: 20110221
  2. SAPHRIS [Suspect]
     Dosage: 10 MG, BID
     Route: 060
     Dates: start: 20110222, end: 20110722
  3. TOPAMAX [Concomitant]

REACTIONS (4)
  - Hepatic enzyme increased [Recovered/Resolved]
  - Blood urea decreased [Unknown]
  - Monocyte count increased [Unknown]
  - Off label use [Unknown]
